FAERS Safety Report 5771867-X (Version None)
Quarter: 2008Q2

REPORT INFORMATION
  Report Type: 
  Country: None (occurrence: None)
  Receive Date: 20080613
  Receipt Date: 20080610
  Transmission Date: 20081010
  Serious: Yes (Congenital Anomaly)
  Sender: FDA-Public Use
  Company Number: B0519958A

PATIENT
  Sex: Male
  Weight: 4 kg

DRUGS (5)
  1. PAXIL [Suspect]
     Indication: DEPRESSION
  2. PAXIL [Suspect]
     Dates: end: 20061231
  3. LENDORMIN [Concomitant]
     Indication: DEPRESSION
     Dates: end: 20061231
  4. BRICANYL [Concomitant]
     Indication: ASTHMA
     Dates: start: 20061011, end: 20061208
  5. MAGNESIUM OXIDE [Concomitant]
     Indication: CONSTIPATION
     Dates: start: 20061208, end: 20061231

REACTIONS (2)
  - DRUG EXPOSURE DURING PREGNANCY [None]
  - POLYDACTYLY [None]
